FAERS Safety Report 21566126 (Version 3)
Quarter: 2022Q4

REPORT INFORMATION
  Report Type: Report from Study
  Country: US (occurrence: US)
  Receive Date: 20221108
  Receipt Date: 20221122
  Transmission Date: 20230112
  Serious: Yes (Other)
  Sender: FDA-Public Use
  Company Number: US-002147023-NVSC2022US247938

PATIENT
  Sex: Male

DRUGS (2)
  1. COSENTYX [Suspect]
     Active Substance: SECUKINUMAB
     Indication: Psoriasis
     Dosage: 300 MG, OTHER (TWO 150 MG/ML SUBCUTANEOUS INJECTION (300 MG/ML) EVERY 4 WEEKS)
     Route: 058
  2. COSENTYX [Suspect]
     Active Substance: SECUKINUMAB
     Indication: Psoriatic arthropathy

REACTIONS (19)
  - Psoriatic arthropathy [Unknown]
  - Arthralgia [Unknown]
  - Pain in extremity [Unknown]
  - Musculoskeletal stiffness [Unknown]
  - Back pain [Unknown]
  - Peripheral swelling [Unknown]
  - Joint swelling [Unknown]
  - Spondyloarthropathy [Unknown]
  - Hyperhidrosis [Unknown]
  - Fatigue [Unknown]
  - Rash [Unknown]
  - Asthenia [Unknown]
  - Hypoaesthesia [Unknown]
  - Dysphoria [Unknown]
  - Sleep disorder [Unknown]
  - Nervousness [Unknown]
  - Anxiety [Unknown]
  - Psoriasis [Unknown]
  - Skin exfoliation [Unknown]
